FAERS Safety Report 13017273 (Version 1)
Quarter: 2016Q4

REPORT INFORMATION
  Report Type: Report from Study
  Country: None (occurrence: NL)
  Receive Date: 20161212
  Receipt Date: 20161212
  Transmission Date: 20170207
  Serious: Yes (Other)
  Sender: FDA-Public Use
  Company Number: NL-ABBVIE-16K-114-1801331-00

PATIENT
  Sex: Male

DRUGS (1)
  1. DUODOPA [Suspect]
     Active Substance: CARBIDOPA\LEVODOPA
     Indication: PARKINSON^S DISEASE
     Dosage: MORNING DOSE: 7,5, CONTINUOUS DOSE:3,4, EXTRA DOSE: 2,5
     Route: 050

REACTIONS (6)
  - Metastases to lung [Not Recovered/Not Resolved]
  - Malignant melanoma [Unknown]
  - Terminal insomnia [Not Recovered/Not Resolved]
  - Anxiety [Not Recovered/Not Resolved]
  - Exophthalmos [Not Recovered/Not Resolved]
  - Discomfort [Not Recovered/Not Resolved]
